FAERS Safety Report 5839477-3 (Version None)
Quarter: 2008Q3

REPORT INFORMATION
  Report Type: 
  Country: None (occurrence: None)
  Receive Date: 20080807
  Receipt Date: 20080728
  Transmission Date: 20090109
  Serious: Yes (Death)
  Sender: FDA-Public Use
  Company Number: 220006M08GBR

PATIENT
  Age: 37 Year
  Sex: Male

DRUGS (2)
  1. SOMATROPIN (SOMATROPIN) [Suspect]
     Dosage: 0.3 MG, 1 IN 1 DAYS, SUBCUTANEOUS
     Route: 058
     Dates: start: 20050628, end: 20060415
  2. CARBAMAZEPINE [Concomitant]

REACTIONS (6)
  - ADENOCARCINOMA [None]
  - CONVULSION [None]
  - FACIAL PALSY [None]
  - HEMIPARESIS [None]
  - INTRACRANIAL PRESSURE INCREASED [None]
  - TERATOMA [None]
